FAERS Safety Report 11351122 (Version 1)
Quarter: 2015Q3

REPORT INFORMATION
  Report Type: Spontaneous
  Country: US (occurrence: US)
  Receive Date: 20150807
  Receipt Date: 20150807
  Transmission Date: 20151125
  Serious: No
  Sender: FDA-Public Use
  Company Number: US-JNJFOC-20141012775

PATIENT
  Age: 39 Year
  Sex: Male
  Weight: 77.11 kg

DRUGS (3)
  1. ROGAINE 5% FOAM [Suspect]
     Active Substance: MINOXIDIL
     Route: 061
  2. ROGAINE 5% FOAM [Suspect]
     Active Substance: MINOXIDIL
     Indication: HAIR GROWTH ABNORMAL
     Route: 061
     Dates: end: 20141015
  3. LIPITOR [Concomitant]
     Active Substance: ATORVASTATIN CALCIUM
     Indication: BLOOD CHOLESTEROL INCREASED
     Route: 065

REACTIONS (3)
  - Skin irritation [Not Recovered/Not Resolved]
  - Thermal burn [Not Recovered/Not Resolved]
  - Pruritus [Not Recovered/Not Resolved]
